FAERS Safety Report 23576487 (Version 1)
Quarter: 2024Q1

REPORT INFORMATION
  Report Type: Spontaneous
  Country: US (occurrence: US)
  Receive Date: 20240228
  Receipt Date: 20240228
  Transmission Date: 20240410
  Serious: No
  Sender: FDA-Public Use
  Company Number: US-UPSHER-SMITH LABORATORIES, LLC-2023USL00738

PATIENT
  Age: 19 Year

DRUGS (1)
  1. MYORISAN [Suspect]
     Active Substance: ISOTRETINOIN
     Dosage: UNK
     Dates: start: 20230202

REACTIONS (3)
  - Dermatitis [Unknown]
  - Cheilitis [Unknown]
  - Xerosis [Unknown]

NARRATIVE: CASE EVENT DATE: 20230517
